FAERS Safety Report 4731537-3 (Version None)
Quarter: 2005Q3

REPORT INFORMATION
  Report Type: 
  Country: None (occurrence: None)
  Receive Date: 20050801
  Receipt Date: 20050801
  Transmission Date: 20060218
  Serious: Yes (Hospitalization, Other)
  Sender: FDA-Public Use
  Company Number: None

PATIENT
  Sex: Male
  Weight: 76 kg

DRUGS (3)
  1. CYTARABINE [Suspect]
     Indication: ACUTE MYELOID LEUKAEMIA
     Dosage: SEE IMAGE
     Route: 042
     Dates: start: 20050718, end: 20050724
  2. DAUNORUBICIN [Suspect]
     Dosage: SEE IMAGE
     Dates: start: 20050718, end: 20050720
  3. VP-16 [Suspect]
     Dosage: SEE IMAGE
     Route: 042
     Dates: start: 20050718, end: 20050720

REACTIONS (3)
  - PHARYNGOLARYNGEAL PAIN [None]
  - PNEUMONIA [None]
  - RESPIRATORY FAILURE [None]
